FAERS Safety Report 11733600 (Version 2)
Quarter: 2015Q4

REPORT INFORMATION
  Report Type: Report from Study
  Country: VE (occurrence: VE)
  Receive Date: 20151113
  Receipt Date: 20151230
  Transmission Date: 20160304
  Serious: Yes (Hospitalization)
  Sender: FDA-Public Use
  Company Number: VE-ABBVIE-15K-178-1497532-00

PATIENT
  Age: 51 Year
  Weight: 81 kg

DRUGS (2)
  1. HUMIRA [Suspect]
     Active Substance: ADALIMUMAB
     Indication: ANKYLOSING SPONDYLITIS
     Route: 058
     Dates: start: 2011, end: 201510
  2. HUMIRA [Suspect]
     Active Substance: ADALIMUMAB
     Route: 058
     Dates: start: 201511

REACTIONS (2)
  - Kidney infection [Recovering/Resolving]
  - Obstructive uropathy [Recovering/Resolving]

NARRATIVE: CASE EVENT DATE: 20151008
